FAERS Safety Report 23606723 (Version 2)
Quarter: 2024Q1

REPORT INFORMATION
  Report Type: Spontaneous
  Country: US (occurrence: US)
  Receive Date: 20240307
  Receipt Date: 20240318
  Transmission Date: 20240410
  Serious: Yes (Hospitalization, Other)
  Sender: FDA-Public Use
  Company Number: US-GLENMARK PHARMACEUTICALS-2024GMK089230

PATIENT

DRUGS (7)
  1. TACROLIMUS [Interacting]
     Active Substance: TACROLIMUS
     Indication: Immunosuppressant drug therapy
     Dosage: UNK (FORMULATION: EXTENDED RELEASE)
     Route: 065
  2. TACROLIMUS [Interacting]
     Active Substance: TACROLIMUS
     Dosage: UNK (FORMULATION: EXTENDED RELEASE)
     Route: 065
  3. ROSUVASTATIN CALCIUM [Interacting]
     Active Substance: ROSUVASTATIN CALCIUM
     Indication: Product used for unknown indication
     Dosage: UNK
     Route: 065
  4. BUSPIRONE [Interacting]
     Active Substance: BUSPIRONE HYDROCHLORIDE
     Indication: Product used for unknown indication
     Dosage: UNK
     Route: 065
  5. NIRMATRELVIR\RITONAVIR [Interacting]
     Active Substance: NIRMATRELVIR\RITONAVIR
     Indication: COVID-19
     Dosage: UNK
     Route: 065
  6. MYCOPHENOLIC ACID [Suspect]
     Active Substance: MYCOPHENOLIC ACID
     Indication: Immunosuppressant drug therapy
     Dosage: UNK
     Route: 065
  7. BEBTELOVIMAB [Concomitant]
     Active Substance: BEBTELOVIMAB
     Indication: Product used for unknown indication
     Dosage: UNK
     Route: 065

REACTIONS (7)
  - Toxicity to various agents [Unknown]
  - Acute kidney injury [Unknown]
  - Drug interaction [Unknown]
  - Drug level above therapeutic [Recovered/Resolved]
  - Vomiting [Unknown]
  - Nausea [Unknown]
  - Malaise [Unknown]
